FAERS Safety Report 25999960 (Version 1)
Quarter: 2025Q4

REPORT INFORMATION
  Report Type: Spontaneous
  Country: US (occurrence: US)
  Receive Date: 20251105
  Receipt Date: 20251105
  Transmission Date: 20260117
  Serious: Yes (Other)
  Sender: COREPHARMA LLC
  Company Number: US-CorePharma LLC-2187936

PATIENT
  Age: 68 Year
  Sex: Female

DRUGS (11)
  1. MELOXICAM [Suspect]
     Active Substance: MELOXICAM
     Indication: Product used for unknown indication
  2. DUPILUMAB [Suspect]
     Active Substance: DUPILUMAB
     Dates: start: 20220405
  3. PRILOSEC [Concomitant]
     Active Substance: OMEPRAZOLE MAGNESIUM
  4. LYRICA [Concomitant]
     Active Substance: PREGABALIN
  5. ROPINIROLE [Concomitant]
     Active Substance: ROPINIROLE
  6. KLONOPIN [Concomitant]
     Active Substance: CLONAZEPAM
  7. DESVENLAFAXINE [Concomitant]
     Active Substance: DESVENLAFAXINE
  8. QUINAPRIL [Concomitant]
     Active Substance: QUINAPRIL
  9. BUPROPION [Concomitant]
     Active Substance: BUPROPION
  10. SERTRALINE [Concomitant]
     Active Substance: SERTRALINE HYDROCHLORIDE
  11. SALAGEN [Concomitant]
     Active Substance: PILOCARPINE HYDROCHLORIDE

REACTIONS (4)
  - Renal impairment [Unknown]
  - Dry eye [Not Recovered/Not Resolved]
  - Eyelid margin crusting [Not Recovered/Not Resolved]
  - Eye infection [Not Recovered/Not Resolved]
